FAERS Safety Report 11917910 (Version 5)
Quarter: 2018Q4

REPORT INFORMATION
  Report Type: Spontaneous
  Country: US (occurrence: US)
  Receive Date: 20160114
  Receipt Date: 20181107
  Transmission Date: 20190204
  Serious: No
  Sender: FDA-Public Use
  Company Number: US-PFIZER INC-2016011262

PATIENT
  Age: 72 Year
  Sex: Female

DRUGS (22)
  1. LYRICA [Suspect]
     Active Substance: PREGABALIN
     Dosage: 225 MG, 3X/DAY
     Route: 048
     Dates: start: 20161118
  2. VITAMIN D3 [Concomitant]
     Active Substance: CHOLECALCIFEROL
     Indication: ROSACEA
  3. MOTRIN [Concomitant]
     Active Substance: IBUPROFEN
     Dosage: 600 MG, 3X/DAY (MEAL TIME)
     Route: 048
     Dates: start: 20160414
  4. MEGA-RED FISH OIL [Concomitant]
     Dosage: UNK UNK, 1X/DAY
  5. BIOTIN [Concomitant]
     Active Substance: BIOTIN
     Indication: NAIL DISORDER
     Dosage: 10000 MG, DAILY
  6. LYRICA [Suspect]
     Active Substance: PREGABALIN
     Dosage: 220 MG, UNK
     Route: 048
     Dates: start: 201601
  7. ANACIN EXTRA STRENGTH [Concomitant]
     Dosage: 2 DF, AS NEEDED (TAKE 2 TABS BY MOUTH ONE TIME DAILY AS NEEDED)
     Route: 048
  8. LYRICA [Suspect]
     Active Substance: PREGABALIN
     Indication: NEUROPATHY PERIPHERAL
     Dosage: 300 MG, 3X/DAY
     Route: 048
  9. LYRICA [Suspect]
     Active Substance: PREGABALIN
     Indication: PAIN
     Dosage: 200 MG, 2X/DAY
     Route: 048
     Dates: start: 201403
  10. FISH OIL [Concomitant]
     Active Substance: FISH OIL
     Dosage: 1 G, 1X/DAY
     Route: 048
  11. LYRICA [Suspect]
     Active Substance: PREGABALIN
     Indication: BURNING SENSATION
     Dosage: 300 MG, 2X/DAY
     Route: 048
     Dates: start: 201504
  12. TENORMIN [Concomitant]
     Active Substance: ATENOLOL
     Dosage: 50 MG, 1X/DAY
     Route: 048
     Dates: start: 20161101
  13. ATENOLOL. [Concomitant]
     Active Substance: ATENOLOL
     Indication: PALPITATIONS
     Dosage: 50 MG, 1X/DAY
     Route: 048
  14. TRIAMTEREEN/HYDROCHLOORTHIAZIDE [Concomitant]
     Active Substance: HYDROCHLOROTHIAZIDE\TRIAMTERENE
     Indication: FLUID RETENTION
     Dosage: UNK UNK, 1X/DAY
  15. KEFLEX [Concomitant]
     Active Substance: CEPHALEXIN
     Indication: ROSACEA
     Dosage: 500 MG, 1X/DAY
     Route: 048
     Dates: start: 20160212
  16. CEPHALEXIN. [Concomitant]
     Active Substance: CEPHALEXIN
     Indication: ROSACEA
     Dosage: 500 MG, 1X/DAY
     Route: 048
  17. LYRICA [Suspect]
     Active Substance: PREGABALIN
     Dosage: 225 MG, 2X/DAY
     Route: 048
     Dates: start: 201511
  18. EPIPEN [Concomitant]
     Active Substance: EPINEPHRINE
     Indication: HYPERSENSITIVITY
     Dosage: 0.3 MG, AS NEEDED (0.3MG/0.3ML SOLN AUTO-INJECTOR)
     Route: 030
     Dates: start: 20160311
  19. METROCREAM [Concomitant]
     Active Substance: METRONIDAZOLE
     Indication: ROSACEA
     Dosage: 0.75 %, AS NEEDED (APPLY 2 TIMES DAILY )
     Route: 061
     Dates: start: 20151104
  20. LYRICA [Suspect]
     Active Substance: PREGABALIN
     Indication: PARAESTHESIA
     Dosage: 300 MG, 3X/DAY
     Dates: start: 20150220, end: 201511
  21. VITAMIN D3 [Concomitant]
     Active Substance: CHOLECALCIFEROL
     Indication: VITAMIN D DEFICIENCY
     Dosage: 2000 IU, 1X/DAY
     Route: 048
     Dates: start: 201504
  22. BABY ASPIRIN [Concomitant]
     Active Substance: ASPIRIN
     Dosage: 81 MG, 1X/DAY

REACTIONS (11)
  - Fluid retention [Not Recovered/Not Resolved]
  - Drug effect incomplete [Not Recovered/Not Resolved]
  - Joint swelling [Unknown]
  - Weight decreased [Unknown]
  - Overdose [Unknown]
  - Glucose tolerance impaired [Unknown]
  - Oedema [Recovered/Resolved]
  - Weight increased [Recovered/Resolved]
  - Peripheral swelling [Unknown]
  - Blood triglycerides increased [Unknown]
  - Burning sensation [Unknown]

NARRATIVE: CASE EVENT DATE: 201502
